FAERS Safety Report 5981460-1 (Version None)
Quarter: 2008Q4

REPORT INFORMATION
  Report Type: 
  Country: None (occurrence: None)
  Receive Date: 20081205
  Receipt Date: 20081126
  Transmission Date: 20090506
  Serious: Yes (Death, Hospitalization, Other)
  Sender: FDA-Public Use
  Company Number: IN-BAXTER-2008BH013099

PATIENT
  Sex: Male
  Weight: 50 kg

DRUGS (2)
  1. DIANEAL [Suspect]
     Indication: RENAL FAILURE CHRONIC
     Route: 033
     Dates: start: 20081101, end: 20081120
  2. DIANEAL [Suspect]
     Route: 033
     Dates: start: 20061101, end: 20081101

REACTIONS (6)
  - ANOREXIA [None]
  - CEREBROVASCULAR ACCIDENT [None]
  - DISORIENTATION [None]
  - DYSPNOEA [None]
  - LOSS OF CONSCIOUSNESS [None]
  - PARALYSIS [None]
